FAERS Safety Report 9119353 (Version 3)
Quarter: 2014Q2

REPORT INFORMATION
  Report Type: Spontaneous
  Country: US (occurrence: US)
  Receive Date: 20130226
  Receipt Date: 20140410
  Transmission Date: 20141212
  Serious: Yes (Death, Hospitalization, Other)
  Sender: FDA-Public Use
  Company Number: US-009507513-1302USA010056

PATIENT
  Age: 40 Year
  Sex: Male
  Weight: 80 kg

DRUGS (1)
  1. ISENTRESS [Suspect]
     Indication: HIV INFECTION
     Dosage: 400 MG, BID
     Route: 048
     Dates: start: 201110, end: 2012

REACTIONS (7)
  - Failure to thrive [Unknown]
  - Coccidioidomycosis [Fatal]
  - Metabolic acidosis [Unknown]
  - Respiratory failure [Unknown]
  - Death [Fatal]
  - Septic shock [Fatal]
  - Sepsis [Unknown]
